FAERS Safety Report 9613515 (Version 2)
Quarter: 2013Q4

REPORT INFORMATION
  Report Type: Spontaneous
  Country: US (occurrence: US)
  Receive Date: 20131010
  Receipt Date: 20131010
  Transmission Date: 20140711
  Serious: Yes (Life-Threatening, Other)
  Sender: FDA-Public Use
  Company Number: US-TEVA-343056USA

PATIENT
  Age: 44 Year
  Sex: Female
  Weight: 57.66 kg

DRUGS (1)
  1. PARAGARD 380A [Suspect]
     Indication: CONTRACEPTION
     Route: 015
     Dates: start: 200903

REACTIONS (4)
  - Embedded device [Unknown]
  - Device breakage [Unknown]
  - Pain [Unknown]
  - Menometrorrhagia [Unknown]
